FAERS Safety Report 6946874-1 (Version None)
Quarter: 2010Q3

REPORT INFORMATION
  Report Type: 
  Country: None (occurrence: None)
  Receive Date: 20100825
  Receipt Date: 20100609
  Transmission Date: 20110219
  Serious: No
  Sender: FDA-Public Use
  Company Number: JP-GUERBET-20100027

PATIENT
  Sex: Male
  Weight: 28.5766 kg

DRUGS (7)
  1. HEXABRIX [Suspect]
     Indication: ANGIOGRAM CEREBRAL
     Dosage: DOSAGE: 20, ML MILLILITRE(S), 1, 1, DAYS INTRA-ARTERIAL
     Route: 013
     Dates: start: 20100608, end: 20100608
  2. SOSEGON: INTRAVENOUS (NOT OTHERWISE SPECIFIED) / PENTAZOCINE [Concomitant]
  3. HORIZON: INTRAVENOUS (NOT OTHERWISE SPECIFIED) / DIAZEPAM [Concomitant]
  4. HEPARIN: INTRAVENOUS (NOT OTHERWISE SPECIFIED) / HEPARIN [Concomitant]
  5. CARBOCAIN: SUBCUTANEOUS / MEPIVACAINE HYDROCHLORIDE [Concomitant]
  6. PLAVIX [Concomitant]
  7. ASPIRIN [Concomitant]

REACTIONS (5)
  - BLOOD PRESSURE DECREASED [None]
  - BRADYCARDIA [None]
  - COLD SWEAT [None]
  - FEELING COLD [None]
  - NAUSEA [None]
